FAERS Safety Report 4314095-7 (Version None)
Quarter: 2004Q1

REPORT INFORMATION
  Report Type: 
  Country: None (occurrence: None)
  Receive Date: 20040308
  Receipt Date: 20040308
  Transmission Date: 20041129
  Serious: Yes (Death)
  Sender: FDA-Public Use
  Company Number: None

PATIENT
  Age: 15 Year
  Sex: Male
  Weight: 68.0396 kg

DRUGS (2)
  1. ZOLOFT [Suspect]
     Indication: DEPRESSION
     Dosage: 100MG ONCE DAILY ORAL
     Route: 048
     Dates: start: 20000414, end: 20000428
  2. ZOLOFT [Suspect]
     Indication: DISTURBANCE IN ATTENTION
     Dosage: 100MG ONCE DAILY ORAL
     Route: 048
     Dates: start: 20000414, end: 20000428

REACTIONS (1)
  - COMPLETED SUICIDE [None]
